FAERS Safety Report 13739021 (Version 2)
Quarter: 2018Q2

REPORT INFORMATION
  Report Type: Spontaneous
  Country: US (occurrence: US)
  Receive Date: 20170710
  Receipt Date: 20180627
  Transmission Date: 20180711
  Serious: No
  Sender: FDA-Public Use
  Company Number: US-SAOL THERAPEUTICS-2017SAO00448

PATIENT
  Sex: Female
  Weight: 88.44 kg

DRUGS (9)
  1. ELIQUIS [Concomitant]
     Active Substance: APIXABAN
  2. HYDROCHLOROTHIAZIDE. [Concomitant]
     Active Substance: HYDROCHLOROTHIAZIDE
  3. BACLOFEN. [Suspect]
     Active Substance: BACLOFEN
     Indication: MUSCLE SPASTICITY
     Dosage: 155 ?G, \DAY
     Route: 037
  4. ESTRIOL [Concomitant]
     Active Substance: ESTRIOL
  5. LOSARTAN. [Concomitant]
     Active Substance: LOSARTAN
  6. HYDRALAZINE [Concomitant]
     Active Substance: HYDRALAZINE HYDROCHLORIDE
  7. OMEPRAZOLE. [Concomitant]
     Active Substance: OMEPRAZOLE
  8. SINGULAIR [Concomitant]
     Active Substance: MONTELUKAST SODIUM
  9. SUMATRIPTAN. [Concomitant]
     Active Substance: SUMATRIPTAN

REACTIONS (7)
  - Muscle spasms [Unknown]
  - Oedema peripheral [Unknown]
  - Muscle spasticity [Unknown]
  - Weight increased [Unknown]
  - Weight decreased [Unknown]
  - Implant site pain [Unknown]
  - Device dislocation [Not Recovered/Not Resolved]
